FAERS Safety Report 15289625 (Version 1)
Quarter: 2018Q3

REPORT INFORMATION
  Report Type: Spontaneous
  Country: DK (occurrence: DK)
  Receive Date: 20180817
  Receipt Date: 20180817
  Transmission Date: 20181010
  Serious: Yes (Life-Threatening, Hospitalization)
  Sender: FDA-Public Use
  Company Number: DK-ALLERGAN-1840275US

PATIENT
  Age: 45 Year
  Sex: Male

DRUGS (5)
  1. BOTOX [Suspect]
     Active Substance: ONABOTULINUMTOXINA
     Indication: HYPERHIDROSIS
     Dosage: UNK UNK, SINGLE
     Route: 030
  2. ACETYLSALICYLIC ACID [Concomitant]
     Active Substance: ASPIRIN
     Indication: THROMBOSIS PROPHYLAXIS
     Dosage: 75 MG, QD (STYRKE: 75 MG.)
     Route: 048
     Dates: start: 20180531
  3. ATORVASTATIN ^ACTAVIS^ [Concomitant]
     Active Substance: ATORVASTATIN
     Indication: HYPERCHOLESTEROLAEMIA
     Dosage: 80 MG, QD (STYRKE: 80 MG.)
     Route: 048
     Dates: start: 20180505
  4. TICAGRELOR. [Concomitant]
     Active Substance: TICAGRELOR
     Indication: CARDIOVASCULAR DISORDER
     Dosage: 180 MG, QD (STYRKE: 90 MG.)
     Route: 048
     Dates: start: 20180531
  5. METOPROLOLSUCCINAT ^HEXAL^ [Concomitant]
     Active Substance: METOPROLOL SUCCINATE
     Indication: CARDIOVASCULAR DISORDER
     Dosage: STYRKE: 25 MG.
     Route: 048
     Dates: start: 20180603

REACTIONS (3)
  - Myocardial infarction [Unknown]
  - Coronary artery stenosis [Unknown]
  - Coronary arterial stent insertion [Recovered/Resolved]

NARRATIVE: CASE EVENT DATE: 201807
